FAERS Safety Report 4538380-9 (Version None)
Quarter: 2004Q4

REPORT INFORMATION
  Report Type: 
  Country: None (occurrence: None)
  Receive Date: 20041221
  Receipt Date: 20041208
  Transmission Date: 20050328
  Serious: Yes (Hospitalization)
  Sender: FDA-Public Use
  Company Number: MK200412-0241-1

PATIENT
  Age: 58 Year
  Sex: Female

DRUGS (3)
  1. TL201 THALLIUM CHLORIDE 9.9MCI [Suspect]
     Indication: STRESS SYMPTOMS
     Dosage: 3.5 MCI, ONCE
     Dates: start: 20041208, end: 20041208
  2. MYOVIEW [Suspect]
     Indication: STRESS SYMPTOMS
     Dosage: 30 MCI, ONCE
     Dates: start: 20041208, end: 20041208
  3. ACE INHIBITOR [Concomitant]

REACTIONS (4)
  - DYSARTHRIA [None]
  - POST PROCEDURAL COMPLICATION [None]
  - SWOLLEN TONGUE [None]
  - TONGUE DISORDER [None]
